FAERS Safety Report 7404091-5 (Version None)
Quarter: 2011Q2

REPORT INFORMATION
  Report Type: 
  Country: None (occurrence: None)
  Receive Date: 20110408
  Receipt Date: 20110405
  Transmission Date: 20111010
  Serious: Yes (Life-Threatening, Hospitalization)
  Sender: FDA-Public Use
  Company Number: US-B.I. PHARMACEUTICALS,INC./RIDGEFIELD-2011-BP-02169BP

PATIENT
  Age: 75 Year
  Sex: Male

DRUGS (9)
  1. NIACIN [Concomitant]
     Dosage: 500 MG
  2. PLAVIX [Concomitant]
     Dosage: 75 MG
     Dates: end: 20110120
  3. LOSARTAN POTASSIUM [Concomitant]
     Dosage: 25 MG
  4. PRADAXA [Suspect]
     Indication: ATRIAL FIBRILLATION
     Dosage: 300 MG
     Dates: start: 20101101
  5. LEVOTHYROXINE [Concomitant]
     Dosage: 25 MG
  6. CARVEDILOL [Concomitant]
     Dosage: 1.25 MG
  7. ZOCOR [Concomitant]
     Dosage: 40 MG
  8. LASIX [Concomitant]
     Dosage: 40 MG
  9. ISOSORBIDE DINITRATE [Concomitant]
     Dosage: 30 MG

REACTIONS (15)
  - ACUTE MYOCARDIAL INFARCTION [None]
  - COAGULOPATHY [None]
  - HEPATITIS ACUTE [None]
  - ENCEPHALOPATHY [None]
  - CONFUSIONAL STATE [None]
  - OESOPHAGEAL ULCER [None]
  - SEPTIC SHOCK [None]
  - PNEUMONIA [None]
  - AGITATION [None]
  - GASTROINTESTINAL HAEMORRHAGE [None]
  - HYPOVOLAEMIC SHOCK [None]
  - RENAL FAILURE ACUTE [None]
  - ACUTE HEPATIC FAILURE [None]
  - GASTROOESOPHAGEAL REFLUX DISEASE [None]
  - HAEMORRHAGIC ANAEMIA [None]
